FAERS Safety Report 15904372 (Version 2)
Quarter: 2019Q1

REPORT INFORMATION
  Report Type: Spontaneous
  Country: JP (occurrence: JP)
  Receive Date: 20190204
  Receipt Date: 20190221
  Transmission Date: 20190417
  Serious: No
  Sender: FDA-Public Use
  Company Number: JP-009507513-1901JPN002975J

PATIENT
  Age: 80 Year
  Sex: Male

DRUGS (5)
  1. STROMECTOL [Suspect]
     Active Substance: IVERMECTIN
     Indication: ACARODERMATITIS
     Dosage: 3 DOSAGE FORM, BID
     Route: 048
     Dates: start: 20181229, end: 20181229
  2. STROMECTOL [Suspect]
     Active Substance: IVERMECTIN
     Dosage: 3 DOSAGE FORM, BID
     Route: 048
     Dates: start: 20190104, end: 20190104
  3. IRBESARTAN. [Concomitant]
     Active Substance: IRBESARTAN
     Indication: HYPERTENSION
     Dosage: UNK
     Route: 065
  4. AMENAMEVIR [Suspect]
     Active Substance: AMENAMEVIR
     Indication: HERPES ZOSTER
     Dosage: 2 DOSAGE FORM, QD
     Route: 048
     Dates: start: 20190111, end: 20190117
  5. NIFEDIPINE. [Concomitant]
     Active Substance: NIFEDIPINE
     Indication: HYPERTENSION
     Dosage: UNK
     Route: 065

REACTIONS (2)
  - Herpes zoster [Unknown]
  - Physical deconditioning [Unknown]

NARRATIVE: CASE EVENT DATE: 20190111
